FAERS Safety Report 25016508 (Version 3)
Quarter: 2025Q3

REPORT INFORMATION
  Report Type: Report from Study
  Country: JP (occurrence: JP)
  Receive Date: 20250227
  Receipt Date: 20250821
  Transmission Date: 20251020
  Serious: Yes (Hospitalization, Other)
  Sender: UCB
  Company Number: JP-UCBJ-CD202408615UCBPHAPROD

PATIENT
  Sex: Female

DRUGS (3)
  1. ZILUCOPLAN [Suspect]
     Active Substance: ZILUCOPLAN
     Indication: Myasthenia gravis
     Route: 058
     Dates: start: 20240626
  2. PREDNISOLONE ACETATE [Concomitant]
     Active Substance: PREDNISOLONE ACETATE
     Indication: Product used for unknown indication
     Route: 048
  3. PROGRAF [Concomitant]
     Active Substance: TACROLIMUS
     Indication: Product used for unknown indication
     Route: 048

REACTIONS (6)
  - Optic neuritis [Unknown]
  - Pneumonia [Unknown]
  - Coronavirus infection [Unknown]
  - Injection site pruritus [Unknown]
  - Photopsia [Unknown]
  - Injection site pain [Unknown]
